FAERS Safety Report 10263142 (Version 2)
Quarter: 2014Q2

REPORT INFORMATION
  Report Type: Report from Study
  Country: US (occurrence: US)
  Receive Date: 20140626
  Receipt Date: 20140626
  Transmission Date: 20141212
  Serious: Yes (Other)
  Sender: FDA-Public Use
  Company Number: US-MYLANLABS-2014S1002962

PATIENT
  Age: 61 Year
  Sex: Female
  Weight: 77.11 kg

DRUGS (10)
  1. CLOZAPINE TABLETS [Suspect]
     Indication: PSYCHOTIC DISORDER
     Route: 048
     Dates: start: 201305, end: 20140117
  2. KLONOPIN [Concomitant]
     Route: 048
  3. SENNA [Concomitant]
  4. COLACE [Concomitant]
  5. VISTARIL [Concomitant]
     Route: 048
  6. METFORMIN [Concomitant]
     Route: 048
  7. AMANTADINE [Concomitant]
     Dates: start: 201401
  8. FUROSEMIDE [Concomitant]
     Route: 048
     Dates: start: 201401
  9. VENTOLIN [Concomitant]
     Dates: start: 201401
  10. HCTZ [Concomitant]
     Dates: start: 201401

REACTIONS (2)
  - Granulocytopenia [Recovered/Resolved]
  - White blood cell count decreased [Recovered/Resolved]
